FAERS Safety Report 6338720-4 (Version None)
Quarter: 2009Q3

REPORT INFORMATION
  Report Type: 
  Country: None (occurrence: None)
  Receive Date: 20090903
  Receipt Date: 20090324
  Transmission Date: 20100115
  Serious: No
  Sender: FDA-Public Use
  Company Number: A0771110A

PATIENT
  Age: 18 Year
  Sex: Male
  Weight: 25.5 kg

DRUGS (2)
  1. RELENZA [Suspect]
     Indication: DRUG USE FOR UNKNOWN INDICATION
     Dosage: 2PUFF TWICE PER DAY
     Route: 055
     Dates: start: 20090225, end: 20090227
  2. TYLENOL ES [Concomitant]
     Dosage: 500MG AS REQUIRED
     Route: 048

REACTIONS (3)
  - FLUSHING [None]
  - HYPERSENSITIVITY [None]
  - RASH GENERALISED [None]
